FAERS Safety Report 15962659 (Version 1)
Quarter: 2019Q1

REPORT INFORMATION
  Report Type: Spontaneous
  Country: JP (occurrence: JP)
  Receive Date: 20190214
  Receipt Date: 20190214
  Transmission Date: 20190417
  Serious: Yes (Other)
  Sender: FDA-Public Use
  Company Number: PHJP2019JP001696

PATIENT
  Sex: Female

DRUGS (1)
  1. SANDOSTATIN [Suspect]
     Active Substance: OCTREOTIDE ACETATE
     Indication: PLEURAL EFFUSION
     Dosage: UNK
     Route: 065

REACTIONS (2)
  - Pleural effusion [Recovered/Resolved]
  - Product use in unapproved indication [Unknown]
